FAERS Safety Report 19144898 (Version 1)
Quarter: 2021Q2

REPORT INFORMATION
  Report Type: Spontaneous
  Country: GB (occurrence: GB)
  Receive Date: 20210416
  Receipt Date: 20210416
  Transmission Date: 20210717
  Serious: Yes (Hospitalization)
  Sender: FDA-Public Use
  Company Number: GB-HIKMA PHARMACEUTICALS USA INC.-GB-H14001-21-54147

PATIENT
  Age: 63 Year
  Sex: Female
  Weight: 93.1 kg

DRUGS (1)
  1. CARBOPLATIN. [Suspect]
     Active Substance: CARBOPLATIN
     Indication: HYPERSENSITIVITY
     Dosage: 450MGS
     Route: 042
     Dates: start: 20210409, end: 20210409

REACTIONS (3)
  - Pruritus [Unknown]
  - Flushing [Unknown]
  - Hypersensitivity [Recovered/Resolved]

NARRATIVE: CASE EVENT DATE: 20210409
